FAERS Safety Report 9759668 (Version 2)
Quarter: 2013Q4

REPORT INFORMATION
  Report Type: Spontaneous
  Country: US (occurrence: US)
  Receive Date: 20131216
  Receipt Date: 20131216
  Transmission Date: 20140711
  Serious: No
  Sender: FDA-Public Use
  Company Number: US-GILEAD-2010-0028582

PATIENT
  Age: 66 Year
  Sex: Female
  Weight: 58.51 kg

DRUGS (33)
  1. LETAIRIS [Suspect]
     Indication: PULMONARY ARTERIAL HYPERTENSION
     Route: 048
     Dates: start: 20100309
  2. VENTAVIS [Concomitant]
  3. REVATIO [Concomitant]
  4. OXYGEN [Concomitant]
  5. REGLAN [Concomitant]
  6. TIKOSYN [Concomitant]
  7. DIGOXIN [Concomitant]
  8. SENNA [Concomitant]
  9. MEGACE [Concomitant]
  10. ZOLOFT [Concomitant]
  11. SYNTHROID [Concomitant]
  12. POTASSIUM [Concomitant]
  13. MIRTAZAPINE [Concomitant]
  14. PREVACID [Concomitant]
  15. METOPROLOL [Concomitant]
  16. ADVIL [Concomitant]
  17. MIRALAX [Concomitant]
  18. XOPENEX [Concomitant]
  19. HUMULIN [Concomitant]
  20. ZOCOR [Concomitant]
  21. COREG [Concomitant]
  22. ATROVENT [Concomitant]
  23. NIFEREX [Concomitant]
  24. VITAMIN D [Concomitant]
  25. MULTIVITAMIN [Concomitant]
  26. BISACODYL [Concomitant]
  27. ADVAIR [Concomitant]
  28. ALBUTEROL [Concomitant]
  29. LUNESTA [Concomitant]
  30. ASPIRIN [Concomitant]
  31. ZOFRAN [Concomitant]
  32. COUMADIN [Concomitant]
  33. LASIX [Concomitant]

REACTIONS (2)
  - Malaise [Unknown]
  - Haemoglobin decreased [Unknown]
